FAERS Safety Report 19891649 (Version 1)
Quarter: 2021Q3

REPORT INFORMATION
  Report Type: Spontaneous
  Country: CZ (occurrence: CZ)
  Receive Date: 20210928
  Receipt Date: 20210928
  Transmission Date: 20211014
  Serious: Yes (Hospitalization, Other)
  Sender: FDA-Public Use
  Company Number: CZ-MYLANLABS-2021M1065336

PATIENT
  Sex: Male
  Weight: 20 kg

DRUGS (8)
  1. PHENYTOIN. [Suspect]
     Active Substance: PHENYTOIN
     Indication: PRODUCT USED FOR UNKNOWN INDICATION
     Dosage: FIRST ADMINISTERED PARENTERALLY AS PART OF INTENSIVE CARE
     Route: 051
     Dates: start: 201704
  2. VIGABATRIN. [Suspect]
     Active Substance: VIGABATRIN
     Indication: PRODUCT USED FOR UNKNOWN INDICATION
     Dosage: UNK
     Dates: start: 201512
  3. EPILAN D                           /00017401/ [Suspect]
     Active Substance: PHENYTOIN
     Dosage: UNK  1/2?1/2?3/4 TBL.
     Dates: start: 201704, end: 201711
  4. PIRACETAM [Suspect]
     Active Substance: PIRACETAM
     Indication: PRODUCT USED FOR UNKNOWN INDICATION
     Dosage: UNK
     Dates: start: 2016
  5. FRISIUM [Suspect]
     Active Substance: CLOBAZAM
     Indication: PRODUCT USED FOR UNKNOWN INDICATION
     Dosage: UNK
     Dates: start: 201607
  6. EPILAN D /00017401/ [Suspect]
     Active Substance: PHENYTOIN
     Indication: PRODUCT USED FOR UNKNOWN INDICATION
     Dosage: 1/2?1/2?3/4 TBL.
     Dates: start: 201711
  7. LEVETIRACETAM. [Suspect]
     Active Substance: LEVETIRACETAM
     Indication: PRODUCT USED FOR UNKNOWN INDICATION
     Dosage: UNK
     Dates: start: 201512
  8. PHENAEMAL [Suspect]
     Active Substance: PHENOBARBITAL
     Indication: PRODUCT USED FOR UNKNOWN INDICATION
     Dosage: UNK
     Dates: start: 2017

REACTIONS (3)
  - Somnolence [Recovered/Resolved]
  - Sedation [Recovered/Resolved]
  - Seizure [Recovered/Resolved]

NARRATIVE: CASE EVENT DATE: 2017
